FAERS Safety Report 5449439-6 (Version None)
Quarter: 2007Q3

REPORT INFORMATION
  Report Type: 
  Country: None (occurrence: None)
  Receive Date: 20070907
  Receipt Date: 20070831
  Transmission Date: 20080115
  Serious: Yes (Death, Hospitalization)
  Sender: FDA-Public Use
  Company Number: FABR-12135

PATIENT
  Age: 52 Year
  Sex: Male
  Weight: 74 kg

DRUGS (16)
  1. FABRAZYME [Suspect]
     Indication: FABRY'S DISEASE
     Dosage: 70 MG IV
     Route: 042
     Dates: start: 20020822, end: 20070801
  2. METOPROLOL SUCCINATE [Concomitant]
  3. NITROGLYCERIN TRANSDERMAL SYSTEM. MFR: RUGBY [Concomitant]
  4. CALTRATE. MFR: LEDERLE LABORATORIES DATE [Concomitant]
  5. ALUTABS [Concomitant]
  6. PLAVIX. MFR: SANOFI [Concomitant]
  7. ALLOPURINOL [Concomitant]
  8. MEGAFOL. MFR: ALPHAPHARM [Concomitant]
  9. VITAMIN B6. MFR. NOT SPECIFIED [Concomitant]
  10. SIMVASTATIN [Concomitant]
  11. IRON [Concomitant]
  12. AVAPRO [Concomitant]
  13. WARFARIN SODIUM [Concomitant]
  14. ROCALTROL MFR: HOFFMAN-LA ROCHE, INC. [Concomitant]
  15. MEGA B [Concomitant]
  16. ZOTON. MFR: CYANAMID [Concomitant]

REACTIONS (4)
  - ANAESTHETIC COMPLICATION CARDIAC [None]
  - ANGIOPATHY [None]
  - CARDIAC ARREST [None]
  - INFARCTION [None]
